FAERS Safety Report 15234940 (Version 1)
Quarter: 2018Q3

REPORT INFORMATION
  Report Type: Spontaneous
  Country: US (occurrence: US)
  Receive Date: 20180803
  Receipt Date: 20180803
  Transmission Date: 20181010
  Serious: Yes (Other)
  Sender: FDA-Public Use
  Company Number: US-ACCORD-065244

PATIENT
  Age: 54 Year
  Sex: Female

DRUGS (18)
  1. HERCEPTIN [Suspect]
     Active Substance: TRASTUZUMAB
     Indication: BREAST CANCER
     Dosage: NUMBER OF CYCLES: 06
     Route: 042
     Dates: start: 20120217, end: 20120607
  2. CYCLOBENZAPRINE. [Concomitant]
     Active Substance: CYCLOBENZAPRINE
  3. DIPHENHYDRAMINE. [Concomitant]
     Active Substance: DIPHENHYDRAMINE
     Dosage: STRENGTH: 50 MG
     Route: 042
  4. HYDROCORTISONE. [Concomitant]
     Active Substance: HYDROCORTISONE
     Dosage: STRENGTH: 100 MG
     Route: 042
  5. DOCETAXEL ACCORD [Suspect]
     Active Substance: DOCETAXEL
     Indication: BREAST CANCER
     Dosage: NUMBER OF CYCLES: 06
     Route: 042
     Dates: start: 20120217, end: 20120607
  6. BACTRIM [Concomitant]
     Active Substance: SULFAMETHOXAZOLE\TRIMETHOPRIM
     Route: 048
  7. HYDROCHLOROTHIAZIDE. [Concomitant]
     Active Substance: HYDROCHLOROTHIAZIDE
     Dosage: STRENGTH: 25 MG
     Route: 048
  8. ASCORBIC ACID. [Concomitant]
     Active Substance: ASCORBIC ACID
  9. LORTAB [Concomitant]
     Active Substance: ACETAMINOPHEN\HYDROCODONE BITARTRATE
     Dosage: STRENGTH: 7.5?500MG
     Route: 048
  10. METHYLPREDNISOLONE. [Concomitant]
     Active Substance: METHYLPREDNISOLONE
     Dosage: STRENGTH: 125 MG
     Route: 042
  11. XANAX [Concomitant]
     Active Substance: ALPRAZOLAM
     Dosage: STRENGTH: 0.5 MG QHS
     Route: 048
  12. ZYRTEC [Concomitant]
     Active Substance: CETIRIZINE HYDROCHLORIDE
  13. CIPROFLOXACIN. [Concomitant]
     Active Substance: CIPROFLOXACIN
  14. ERGOCALCIFEROL. [Concomitant]
     Active Substance: ERGOCALCIFEROL
  15. PARAPLATIN [Suspect]
     Active Substance: CARBOPLATIN
     Indication: BREAST CANCER
     Dosage: NUMBER OF CYCLES: 06
     Route: 042
     Dates: start: 20120217, end: 20120607
  16. PRILOSEC [Concomitant]
     Active Substance: OMEPRAZOLE MAGNESIUM
     Dosage: STRENGTH: 20 MG
     Route: 048
  17. ZOFRAN [Concomitant]
     Active Substance: ONDANSETRON HYDROCHLORIDE
     Dosage: STRENGTH : 8 MG
     Route: 048
  18. PROMETHAZINE [Concomitant]
     Active Substance: PROMETHAZINE\PROMETHAZINE HYDROCHLORIDE
     Dosage: STRENGTH: 25 MG
     Route: 048

REACTIONS (1)
  - Alopecia [Not Recovered/Not Resolved]

NARRATIVE: CASE EVENT DATE: 201203
